FAERS Safety Report 21179399 (Version 2)
Quarter: 2023Q1

REPORT INFORMATION
  Report Type: Spontaneous
  Country: IT (occurrence: IT)
  Receive Date: 20220805
  Receipt Date: 20230106
  Transmission Date: 20230417
  Serious: Yes (Hospitalization, Other)
  Sender: FDA-Public Use
  Company Number: IT-NOVARTISPH-NVSC2021IT298033

PATIENT
  Age: 6 Year
  Sex: Male

DRUGS (4)
  1. AMOXICILLIN\CLAVULANATE POTASSIUM [Suspect]
     Active Substance: AMOXICILLIN\CLAVULANATE POTASSIUM
     Indication: Product used for unknown indication
     Dosage: 50 MG/KG, QD (50 MG/KG, 1D (REFRACTED DOSES (1/10-2/10-7/10)
     Route: 048
  2. AZITHROMYCIN DIHYDRATE [Suspect]
     Active Substance: AZITHROMYCIN DIHYDRATE
     Indication: Product used for unknown indication
     Dosage: UNK
     Route: 065
  3. CEFIXIME [Suspect]
     Active Substance: CEFIXIME
     Indication: Product used for unknown indication
     Dosage: UNK
     Route: 065
  4. CEFACLOR [Suspect]
     Active Substance: CEFACLOR
     Indication: Product used for unknown indication
     Dosage: UNK
     Route: 065

REACTIONS (13)
  - General physical health deterioration [Recovered/Resolved]
  - Vomiting [Recovering/Resolving]
  - Pallor [Recovered/Resolved]
  - Lethargy [Recovering/Resolving]
  - Neutrophilia [Recovering/Resolving]
  - Leukocytosis [Recovering/Resolving]
  - Dehydration [Recovering/Resolving]
  - Enterocolitis [Recovering/Resolving]
  - Angioedema [Recovered/Resolved]
  - Type I hypersensitivity [Unknown]
  - Drug hypersensitivity [Recovered/Resolved]
  - CD4 lymphocyte percentage increased [Recovered/Resolved]
  - Methaemoglobinaemia [Recovered/Resolved]
